FAERS Safety Report 24109336 (Version 1)
Quarter: 2024Q3

REPORT INFORMATION
  Report Type: Spontaneous
  Country: US (occurrence: US)
  Receive Date: 20240718
  Receipt Date: 20240718
  Transmission Date: 20241017
  Serious: No
  Sender: ROCHE
  Company Number: US-ROCHE-10000024072

PATIENT
  Sex: Female

DRUGS (1)
  1. ACTEMRA ACTPEN [Suspect]
     Active Substance: TOCILIZUMAB
     Indication: Rheumatoid arthritis
     Dosage: ONGOING, STRENGTH: 162MG/0.9M
     Route: 058
     Dates: start: 202405

REACTIONS (7)
  - Peripheral swelling [Unknown]
  - Diabetes mellitus [Unknown]
  - Cardiac disorder [Unknown]
  - Weight increased [Unknown]
  - Erythema [Unknown]
  - Feeling hot [Unknown]
  - Oedema peripheral [Unknown]
